FAERS Safety Report 8207391-4 (Version None)
Quarter: 2012Q1

REPORT INFORMATION
  Report Type: 
  Country: None (occurrence: None)
  Receive Date: 20120312
  Receipt Date: 20120229
  Transmission Date: 20120608
  Serious: Yes (Other)
  Sender: FDA-Public Use
  Company Number: DSJ-2012-04137

PATIENT
  Age: 7 Decade
  Sex: Male

DRUGS (5)
  1. BENICAR [Suspect]
     Indication: HYPERTENSION
     Dosage: 20 MG (20 MG, 1 IN 1 D), PER ORAL
     Route: 048
     Dates: start: 20080101, end: 20110101
  2. PROPATYL NITRATE [Concomitant]
  3. CLOPIDOGREL [Concomitant]
  4. ATORVASTATIN (ATORVASTATIN) (ATORVASTATIN) [Concomitant]
  5. ACETYLSALICYLIC (ACETYLSALICYLIC) (ACETYLSALICYLIC) [Concomitant]

REACTIONS (3)
  - STENT PLACEMENT [None]
  - ANGIOPLASTY [None]
  - HYPOTENSION [None]
